FAERS Safety Report 7470249-2 (Version None)
Quarter: 2011Q2

REPORT INFORMATION
  Report Type: 
  Country: None (occurrence: None)
  Receive Date: 20110510
  Receipt Date: 20110504
  Transmission Date: 20111010
  Serious: Yes (Other)
  Sender: FDA-Public Use
  Company Number: PHHY2011IN37875

PATIENT
  Age: 37 Year
  Sex: Male

DRUGS (7)
  1. MYCOPHENOLATE MOFETIL [Interacting]
     Dosage: 4000 MG/DAY
  2. AMPICILLIN SODIUM/SULBACTAM SODIUM [Suspect]
     Indication: LOWER RESPIRATORY TRACT INFECTION
  3. PREDNISOLONE [Concomitant]
     Indication: RENAL TRANSPLANT
  4. MYCOPHENOLATE MOFETIL [Interacting]
     Dosage: 3250 MG/DAY
  5. MYCOPHENOLATE MOFETIL [Interacting]
     Dosage: 2000 MG/DAY
  6. TACROLIMUS [Concomitant]
     Indication: RENAL TRANSPLANT
  7. MYCOPHENOLATE MOFETIL [Interacting]
     Indication: RENAL TRANSPLANT
     Dosage: 2250 M/DAY

REACTIONS (2)
  - DRUG LEVEL DECREASED [None]
  - DRUG INTERACTION [None]
